FAERS Safety Report 24152477 (Version 1)
Quarter: 2024Q3

REPORT INFORMATION
  Report Type: Spontaneous
  Country: US (occurrence: US)
  Receive Date: 20240730
  Receipt Date: 20240730
  Transmission Date: 20241016
  Serious: Yes (Life-Threatening, Hospitalization, Other)
  Sender: MERCK
  Company Number: US-MERCK-0405USA00949

PATIENT
  Sex: Male
  Weight: 71 kg

DRUGS (26)
  1. EMEND [Suspect]
     Active Substance: APREPITANT
     Indication: Prophylaxis of nausea and vomiting
     Dosage: 125 MG, ONCE
     Route: 048
     Dates: start: 20040213, end: 20040213
  2. EMEND [Suspect]
     Active Substance: APREPITANT
     Dosage: 80 MG, QD
     Route: 048
     Dates: start: 20040214, end: 20040217
  3. ZOFRAN [Concomitant]
     Active Substance: ONDANSETRON HYDROCHLORIDE
     Dosage: 32 MG, QD
     Route: 042
  4. DACARBAZINE [Concomitant]
     Active Substance: DACARBAZINE
     Dosage: 800 MG, QD
     Route: 042
     Dates: start: 20040213
  5. VINBLASTINE SULFATE [Suspect]
     Active Substance: VINBLASTINE SULFATE
     Dosage: 1.5 MG/M2, QD
     Route: 042
     Dates: start: 20040217
  6. PROLEUKIN [ALDESLEUKIN] [Concomitant]
     Dosage: 18,000,000
     Route: 042
     Dates: start: 20040213
  7. PROLEUKIN [ALDESLEUKIN] [Concomitant]
     Dosage: 9,000,000
     Route: 042
     Dates: start: 20040214
  8. PROLEUKIN [ALDESLEUKIN] [Concomitant]
     Dosage: 4,500,000
     Route: 042
     Dates: start: 20040215
  9. PROLEUKIN [ALDESLEUKIN] [Concomitant]
     Dosage: 4,500,000
     Route: 042
     Dates: start: 20040216
  10. PROLEUKIN [ALDESLEUKIN] [Concomitant]
     Dosage: UNK MG/M2, UNK
     Dates: start: 20040217
  11. INTERFERON ALFA NOS [Concomitant]
     Active Substance: INTERFERON ALFA-2A OR INTERFERON ALFA-2B
     Route: 058
     Dates: start: 20040218
  12. CISPLATIN [Concomitant]
     Active Substance: CISPLATIN
     Dosage: 20 MG/M2, QD
     Route: 042
     Dates: start: 20040217
  13. PROTONIX [Concomitant]
     Active Substance: PANTOPRAZOLE SODIUM
     Dosage: 40 MG, QD
  14. ATIVAN [Concomitant]
     Active Substance: LORAZEPAM
     Indication: Nausea
  15. INTRON A [Concomitant]
     Active Substance: INTERFERON ALFA-2B
     Dosage: 5 MG/M2, QD
  16. BENADRYL [Concomitant]
     Active Substance: DIPHENHYDRAMINE HYDROCHLORIDE
  17. TYLENOL [Concomitant]
     Active Substance: ACETAMINOPHEN
  18. MK-0745 [Concomitant]
  19. MUPIROCIN [Concomitant]
     Active Substance: MUPIROCIN
  20. EUCERIN [PARAFFIN, LIQUID;PETROLATUM;WOOL FAT] [Concomitant]
  21. DEMEROL [Concomitant]
     Active Substance: MEPERIDINE HYDROCHLORIDE
  22. ATARAX [Concomitant]
     Active Substance: HYDROXYZINE HYDROCHLORIDE
  23. LOPERAMIDE HYDROCHLORIDE [Concomitant]
     Active Substance: LOPERAMIDE HYDROCHLORIDE
  24. PARAFFIN [Concomitant]
     Active Substance: PARAFFIN
  25. NEULASTA [Concomitant]
     Active Substance: PEGFILGRASTIM
     Dates: start: 20040217
  26. OPIUM [Concomitant]
     Active Substance: MORPHINE\OPIUM

REACTIONS (9)
  - Pancytopenia [Recovered/Resolved]
  - Drug interaction [Recovered/Resolved]
  - Sepsis [Recovered/Resolved]
  - Pneumonia [Recovered/Resolved]
  - Product administration error [Recovered/Resolved]
  - Fatigue [Recovered/Resolved]
  - Feeling abnormal [Recovered/Resolved]
  - Pyrexia [Recovered/Resolved]
  - Respiratory tract infection [Recovered/Resolved]

NARRATIVE: CASE EVENT DATE: 20040213
